FAERS Safety Report 7425711 (Version 7)
Quarter: 2015Q2

REPORT INFORMATION
  Report Type: Report from Study
  Country: US (occurrence: US)
  Receive Date: 20100621
  Receipt Date: 20150512
  Transmission Date: 20150821
  Serious: Yes (Hospitalization, Other)
  Sender: FDA-Public Use
  Company Number: US-BIOGENIDEC-2010BI019248

PATIENT
  Age: 41 Year
  Sex: Female

DRUGS (2)
  1. AVONEX [Suspect]
     Active Substance: INTERFERON BETA-1A
     Indication: MULTIPLE SCLEROSIS
     Route: 030
  2. AVONEX [Suspect]
     Active Substance: INTERFERON BETA-1A
     Indication: MULTIPLE SCLEROSIS
     Route: 030
     Dates: start: 20001201

REACTIONS (39)
  - Mobility decreased [Recovered/Resolved]
  - Urosepsis [Recovered/Resolved]
  - Rotator cuff syndrome [Not Recovered/Not Resolved]
  - Fear [Unknown]
  - Memory impairment [Unknown]
  - Paraplegia [Not Recovered/Not Resolved]
  - Fatigue [Unknown]
  - Arthralgia [Recovered/Resolved]
  - Dysphagia [Recovered/Resolved]
  - Gastrooesophageal reflux disease [Not Recovered/Not Resolved]
  - Asthma [Not Recovered/Not Resolved]
  - Thrombosis [Unknown]
  - Respiratory disorder [Unknown]
  - Tremor [Unknown]
  - Influenza like illness [Recovered/Resolved]
  - Lymphoedema [Recovered/Resolved]
  - Staphylococcal infection [Recovered/Resolved]
  - Multiple sclerosis relapse [Recovered/Resolved]
  - Visual impairment [Unknown]
  - Feeling guilty [Unknown]
  - Pain in extremity [Not Recovered/Not Resolved]
  - Drug delivery device implantation [Unknown]
  - Anaphylactic reaction [Recovered/Resolved]
  - Renal disorder [Unknown]
  - Surgery [Unknown]
  - Varicose vein [Unknown]
  - Pneumonia aspiration [Recovered/Resolved]
  - Crying [Unknown]
  - Urostomy [Unknown]
  - Epicondylitis [Not Recovered/Not Resolved]
  - Muscle spasms [Not Recovered/Not Resolved]
  - Multiple sclerosis [Unknown]
  - Cardio-respiratory arrest [Recovered/Resolved]
  - Muscle fatigue [Recovered/Resolved]
  - Mental impairment [Recovered/Resolved]
  - Osteoporosis [Not Recovered/Not Resolved]
  - Carpal tunnel syndrome [Not Recovered/Not Resolved]
  - Headache [Recovered/Resolved]
  - Pain [Recovered/Resolved]

NARRATIVE: CASE EVENT DATE: 200012
